FAERS Safety Report 5273776-1 (Version None)
Quarter: 2007Q1

REPORT INFORMATION
  Report Type: 
  Country: None (occurrence: None)
  Receive Date: 20070323
  Receipt Date: 20070313
  Transmission Date: 20070707
  Serious: Yes (Death, Hospitalization)
  Sender: FDA-Public Use
  Company Number: IT-AVENTIS-200711318EU

PATIENT
  Age: 87 Year
  Sex: Male

DRUGS (8)
  1. CLEXANE [Suspect]
     Route: 058
     Dates: start: 20070221, end: 20070227
  2. URBASON [Suspect]
     Route: 042
     Dates: start: 20070220, end: 20070227
  3. SEREPRILE [Concomitant]
  4. BENERVA [Concomitant]
  5. BRONCOVALEAS                       /00139501/ [Concomitant]
     Route: 055
  6. ATARAX                             /00058402/ [Concomitant]
  7. KLACID                             /00984601/ [Concomitant]
  8. ROCEPHIN [Concomitant]

REACTIONS (4)
  - ANAEMIA [None]
  - DUODENAL ULCER [None]
  - GASTRIC ULCER [None]
  - RESPIRATORY FAILURE [None]
